FAERS Safety Report 14210782 (Version 1)
Quarter: 2017Q4

REPORT INFORMATION
  Report Type: Spontaneous
  Country: ES (occurrence: ES)
  Receive Date: 20171121
  Receipt Date: 20171121
  Transmission Date: 20180321
  Serious: Yes (Other)
  Sender: FDA-Public Use
  Company Number: ES-JNJFOC-20171117622

PATIENT
  Age: 37 Year
  Sex: Female
  Weight: 59 kg

DRUGS (9)
  1. RISPERDAL [Suspect]
     Active Substance: RISPERIDONE
     Indication: SCHIZOAFFECTIVE DISORDER BIPOLAR TYPE
     Route: 048
     Dates: start: 20160721, end: 201611
  2. DEPAKINE [Interacting]
     Active Substance: VALPROATE SODIUM
     Indication: SCHIZOAFFECTIVE DISORDER BIPOLAR TYPE
     Route: 048
     Dates: start: 20160621
  3. SEROQUEL [Interacting]
     Active Substance: QUETIAPINE FUMARATE
     Indication: SCHIZOAFFECTIVE DISORDER BIPOLAR TYPE
     Route: 048
     Dates: start: 20160612
  4. RIVOTRIL [Interacting]
     Active Substance: CLONAZEPAM
     Indication: SCHIZOAFFECTIVE DISORDER BIPOLAR TYPE
     Route: 048
     Dates: start: 20160612, end: 20160901
  5. LORMETAZEPAM [Interacting]
     Active Substance: LORMETAZEPAM
     Indication: SCHIZOAFFECTIVE DISORDER BIPOLAR TYPE
     Route: 048
     Dates: start: 20160612, end: 20160901
  6. EUTIROX [Concomitant]
     Active Substance: LEVOTHYROXINE SODIUM
     Dosage: ON SUNDAY
     Route: 048
     Dates: start: 20170112, end: 20170621
  7. RISPERDAL [Suspect]
     Active Substance: RISPERIDONE
     Indication: SCHIZOAFFECTIVE DISORDER BIPOLAR TYPE
     Route: 048
     Dates: start: 20160612, end: 20160621
  8. DEPAKINE [Interacting]
     Active Substance: VALPROATE SODIUM
     Indication: SCHIZOAFFECTIVE DISORDER BIPOLAR TYPE
     Route: 048
     Dates: start: 20160612, end: 20160621
  9. EUTIROX [Concomitant]
     Active Substance: LEVOTHYROXINE SODIUM
     Dosage: FROM MONDAY TO SATURDAY
     Route: 048
     Dates: end: 201611

REACTIONS (2)
  - Abnormal weight gain [Unknown]
  - Drug interaction [Unknown]

NARRATIVE: CASE EVENT DATE: 201606
